FAERS Safety Report 25276627 (Version 1)
Quarter: 2025Q2

REPORT INFORMATION
  Report Type: Spontaneous
  Country: ES (occurrence: ES)
  Receive Date: 20250507
  Receipt Date: 20250507
  Transmission Date: 20250717
  Serious: Yes (Other)
  Sender: GLAXOSMITHKLINE
  Company Number: None

PATIENT

DRUGS (1)
  1. FLUTICASONE FUROATE\VILANTEROL TRIFENATATE [Suspect]
     Active Substance: FLUTICASONE FUROATE\VILANTEROL TRIFENATATE
     Indication: Bronchitis
     Dosage: 1 DF, QD
     Route: 055
     Dates: start: 20250324, end: 20250407

REACTIONS (1)
  - Aphonia [Recovering/Resolving]

NARRATIVE: CASE EVENT DATE: 20250331
